FAERS Safety Report 12273756 (Version 19)
Quarter: 2019Q4

REPORT INFORMATION
  Report Type: Spontaneous
  Country: US (occurrence: US)
  Receive Date: 20160415
  Receipt Date: 20191220
  Transmission Date: 20200122
  Serious: Yes (Hospitalization, Other)
  Sender: FDA-Public Use
  Company Number: US-PFIZER INC-2016213451

PATIENT
  Age: 47 Year
  Sex: Male

DRUGS (137)
  1. DILANTIN [Suspect]
     Active Substance: PHENYTOIN
     Dosage: 100 MG, UNK
     Route: 048
     Dates: start: 20091213
  2. DILANTIN [Suspect]
     Active Substance: PHENYTOIN
     Dosage: 400 MG, DAILY
     Route: 048
     Dates: start: 20100319
  3. DILANTIN [Suspect]
     Active Substance: PHENYTOIN
     Dosage: 400 MG, DAILY (AT BED TIME)
     Route: 048
     Dates: start: 20121019, end: 20121119
  4. DILANTIN [Suspect]
     Active Substance: PHENYTOIN
     Dosage: UNK
     Route: 048
     Dates: start: 20130228, end: 20130303
  5. DILANTIN [Suspect]
     Active Substance: PHENYTOIN
     Dosage: 500 MG, DAILY AT BED TIME
     Route: 048
     Dates: start: 20130910, end: 20131024
  6. DEPAKOTE [Concomitant]
     Active Substance: DIVALPROEX SODIUM
     Indication: MYOCLONUS
     Dosage: 1 DF, 2X/DAY, 125 MG TBEC DR TAB, TAKE 1 TABLET ORALLY 2 TIMES A DAY
     Route: 048
  7. KEPPRA [Concomitant]
     Active Substance: LEVETIRACETAM
     Indication: SEIZURE
     Dosage: 500 MG, 2X/DAY
     Route: 048
  8. ZARONTIN [Concomitant]
     Active Substance: ETHOSUXIMIDE
     Indication: SEIZURE
     Dosage: 1 DF, 2X/DAY
     Route: 048
     Dates: start: 2011
  9. DAPSONE. [Concomitant]
     Active Substance: DAPSONE
     Dosage: 25 MG, UNK
     Route: 048
  10. DELTASONE [Concomitant]
     Active Substance: PREDNISONE
     Dosage: 3 DF, DAILY
     Route: 048
  11. TOPAMAX [Concomitant]
     Active Substance: TOPIRAMATE
     Dosage: UNK
  12. CLONAZEPAM. [Concomitant]
     Active Substance: CLONAZEPAM
     Indication: MUSCLE SPASMS
     Dosage: UNK
     Dates: start: 2010
  13. ZONEGRAN [Concomitant]
     Active Substance: ZONISAMIDE
     Indication: SEIZURE
     Dosage: UNK
     Dates: start: 2005
  14. LIPITOR [Concomitant]
     Active Substance: ATORVASTATIN CALCIUM
     Indication: CEREBROVASCULAR ACCIDENT
     Dosage: 20 MG, UNK
     Route: 048
  15. VIAGRA [Concomitant]
     Active Substance: SILDENAFIL CITRATE
     Dosage: 100 MG, UNK
     Route: 048
  16. DILANTIN [Suspect]
     Active Substance: PHENYTOIN
     Indication: JUVENILE MYOCLONIC EPILEPSY
     Dosage: UNK
     Dates: start: 1983
  17. DILANTIN [Suspect]
     Active Substance: PHENYTOIN
     Dosage: 30 MG, UNK
     Route: 048
     Dates: start: 20090806
  18. DILANTIN [Suspect]
     Active Substance: PHENYTOIN
     Dosage: 100 MG, UNK
     Route: 048
     Dates: start: 20090925
  19. DILANTIN [Suspect]
     Active Substance: PHENYTOIN
     Dosage: 100 MG, UNK
     Route: 048
     Dates: start: 20091105
  20. DILANTIN [Suspect]
     Active Substance: PHENYTOIN
     Dosage: 400 MG, 1X/DAY (100 MG 4 CAPSULES AT BED TIME)
     Route: 048
     Dates: start: 20110210
  21. DIVALPROEX [Concomitant]
     Active Substance: DIVALPROEX SODIUM
     Indication: MYOCLONUS
     Dosage: TAKE 1 TABLET 2 TIMES A DAY
     Route: 048
  22. KEPPRA [Concomitant]
     Active Substance: LEVETIRACETAM
     Dosage: 1000 MG, UNK (FOR FEW DAYS)
  23. DELTASONE [Concomitant]
     Active Substance: PREDNISONE
     Dosage: 3 DF, 1X/DAY
     Route: 048
     Dates: start: 20140706, end: 20151008
  24. BIO-35, GLUTEN FREE [Concomitant]
     Dosage: 1 DF, 1X/DAY
     Route: 048
  25. ANECREAM [Concomitant]
     Active Substance: LIDOCAINE
     Dosage: APPLY AS DIRECTED TO AFFECTED AREA
  26. LEVOTHYROXINE. [Concomitant]
     Active Substance: LEVOTHYROXINE
     Indication: THYROID DISORDER
     Dosage: UNK
     Dates: start: 2013, end: 2018
  27. HYDROCODONE [Concomitant]
     Active Substance: HYDROCODONE
     Dosage: UNK (ONE MONTH)
     Dates: start: 2013
  28. ATARAX [Concomitant]
     Active Substance: HYDROXYZINE HYDROCHLORIDE
     Indication: PRURITUS
     Dosage: 25 MG, AS NEEDED (EVERY 6 HOURS)
     Route: 048
  29. KEFLEX [Concomitant]
     Active Substance: CEPHALEXIN
     Dosage: 1 DF, 4X/DAY
     Route: 048
  30. BISACODYL. [Concomitant]
     Active Substance: BISACODYL
     Dosage: 15 MG, EVERY MORNING
     Route: 048
  31. TYLENOL [Concomitant]
     Active Substance: ACETAMINOPHEN
     Dosage: 650 MG, UNK
     Route: 048
     Dates: start: 20150130
  32. BENADRYL [Concomitant]
     Active Substance: DIPHENHYDRAMINE HYDROCHLORIDE
     Dosage: 50 MG, UNK
     Route: 042
     Dates: start: 20150130
  33. DILANTIN [Suspect]
     Active Substance: PHENYTOIN
     Dosage: 100 MG, UNK
     Route: 048
     Dates: start: 20090715
  34. DILANTIN [Suspect]
     Active Substance: PHENYTOIN
     Dosage: 100 MG, UNK
     Route: 048
     Dates: start: 20100301
  35. DILANTIN [Suspect]
     Active Substance: PHENYTOIN
     Dosage: 400 MG, 1X/DAY (100 MG 4 CAPSULES AT BED TIME)
     Route: 048
     Dates: start: 20101123
  36. DILANTIN [Suspect]
     Active Substance: PHENYTOIN
     Dosage: 400 MG, 1X/DAY (100 MG 4 CAPSULES AT BED TIME)
     Route: 048
     Dates: start: 20121019
  37. DILANTIN [Suspect]
     Active Substance: PHENYTOIN
     Dosage: 60 MG, DAILY
     Route: 048
     Dates: start: 20090804
  38. DILANTIN [Suspect]
     Active Substance: PHENYTOIN
     Dosage: UNK
     Route: 048
     Dates: start: 20101123, end: 20110207
  39. DILANTIN [Suspect]
     Active Substance: PHENYTOIN
     Dosage: 400 MG, DAILY (AT BED TIME)
     Route: 048
     Dates: start: 20120607, end: 20120611
  40. DILANTIN [Suspect]
     Active Substance: PHENYTOIN
     Dosage: UNK
     Route: 048
     Dates: start: 20121119, end: 20121204
  41. DILANTIN [Suspect]
     Active Substance: PHENYTOIN
     Dosage: UNK
     Route: 048
     Dates: start: 20120612, end: 20120616
  42. DILANTIN [Suspect]
     Active Substance: PHENYTOIN
     Dosage: 500 MG, DAILY AT BEDTIME
     Route: 048
     Dates: start: 20130725, end: 20130906
  43. KLONOPIN [Concomitant]
     Active Substance: CLONAZEPAM
     Dosage: UNK
     Route: 048
     Dates: start: 20131223, end: 20140112
  44. LAMICTAL [Concomitant]
     Active Substance: LAMOTRIGINE
     Indication: MYOCLONUS
     Dosage: 1 TABLET 2 TIMES A DAY OR AS DIRECTED
     Route: 048
  45. KEPPRA [Concomitant]
     Active Substance: LEVETIRACETAM
     Dosage: UNK
     Dates: start: 2018
  46. KEPPRA [Concomitant]
     Active Substance: LEVETIRACETAM
     Dosage: UNK
  47. LEVITRA [Concomitant]
     Active Substance: VARDENAFIL HYDROCHLORIDE
     Dosage: 20 MG, UNK
     Route: 048
  48. SYNTHROID [Concomitant]
     Active Substance: LEVOTHYROXINE SODIUM
     Indication: THYROID DISORDER
     Dosage: 1 DF, 1X/DAY
     Route: 048
     Dates: start: 20150314, end: 20160708
  49. SYNTHROID [Concomitant]
     Active Substance: LEVOTHYROXINE SODIUM
     Dosage: UNK
     Dates: start: 2013, end: 2014
  50. DAPSONE. [Concomitant]
     Active Substance: DAPSONE
     Dosage: UNK
     Dates: start: 2013, end: 2015
  51. OCTAGAM IMMUNE GLOBULIN (HUMAN) [Concomitant]
     Active Substance: HUMAN IMMUNOGLOBULIN G
     Dosage: 30 G, 1X/DAY (DAILY FOR 5 CONSECUTIVE DAYS, REPEAT REGIMEN MONTHLY)
     Route: 042
     Dates: start: 20140515, end: 20150531
  52. MULTIVITAMIN ORAL [Concomitant]
     Dosage: 1 DF, 1X/DAY
     Route: 048
  53. MEDROL [Concomitant]
     Active Substance: METHYLPREDNISOLONE
     Dosage: TAKE 1 TABLET DAILY UNTIL GONE
     Route: 048
  54. LYRICA [Concomitant]
     Active Substance: PREGABALIN
     Indication: SEIZURE
     Dosage: UNK
     Dates: start: 2005, end: 2007
  55. CLONAZEPAM. [Concomitant]
     Active Substance: CLONAZEPAM
     Dosage: 1 DF, 3X/DAY
     Route: 048
  56. IRON SUPPLEMENT [Concomitant]
     Active Substance: IRON
     Dosage: UNK
     Dates: start: 2013
  57. KENALOG [Concomitant]
     Active Substance: TRIAMCINOLONE ACETONIDE
     Dosage: 40 MG/ML, UNK
  58. DILANTIN [Suspect]
     Active Substance: PHENYTOIN
     Dosage: 100 MG, UNK
     Route: 048
     Dates: start: 20100123
  59. DILANTIN [Suspect]
     Active Substance: PHENYTOIN
     Dosage: 500 MG, 1X/DAY (100 MG 5 CAPSULES AT BED TIME)
     Route: 048
     Dates: start: 20121207
  60. DILANTIN [Suspect]
     Active Substance: PHENYTOIN
     Dosage: UNK
     Route: 048
     Dates: start: 20121207, end: 20130227
  61. DILANTIN [Suspect]
     Active Substance: PHENYTOIN
     Dosage: UNK
     Route: 048
     Dates: start: 20130304, end: 20130718
  62. DILANTIN [Suspect]
     Active Substance: PHENYTOIN
     Dosage: UNK
     Route: 048
     Dates: start: 20120619, end: 20121018
  63. DILANTIN [Suspect]
     Active Substance: PHENYTOIN
     Dosage: UNK
     Route: 048
     Dates: start: 20131024, end: 20140429
  64. DEPAKOTE [Concomitant]
     Active Substance: DIVALPROEX SODIUM
     Indication: SEIZURE
     Dosage: UNK (OFF AND ON)
     Dates: start: 1991
  65. DEPAKOTE [Concomitant]
     Active Substance: DIVALPROEX SODIUM
     Dosage: 125 MG, 2X/DAY
     Route: 048
  66. DEPAKOTE [Concomitant]
     Active Substance: DIVALPROEX SODIUM
     Dosage: 250 MG, 2X/DAY (1 TABLET)
     Route: 048
  67. ZARONTIN [Concomitant]
     Active Substance: ETHOSUXIMIDE
     Dosage: 250 MG, 2X/DAY
     Route: 048
  68. ZANTAC [Concomitant]
     Active Substance: RANITIDINE HYDROCHLORIDE
     Dosage: 1 DF, 2X/DAY
     Route: 048
     Dates: start: 20140515, end: 20150815
  69. FERROUS GLUCONATE [Concomitant]
     Active Substance: FERROUS GLUCONATE
     Dosage: 1 DF, 2X/DAY
     Route: 048
  70. TEMOVATE [Concomitant]
     Active Substance: CLOBETASOL PROPIONATE
     Dosage: UNK, 2X/DAY (APPLY 2 TIMES A DAY TO AFFECTED AREA)
     Route: 061
  71. CLONAZEPAM. [Concomitant]
     Active Substance: CLONAZEPAM
     Indication: SEIZURE
     Dosage: 1 DF, 2X/DAY
     Route: 048
  72. LEVOTHYROXINE. [Concomitant]
     Active Substance: LEVOTHYROXINE
     Dosage: UNK
     Route: 048
  73. BACITRACIN. [Concomitant]
     Active Substance: BACITRACIN
     Dosage: UNK, 500 UNIT/G
     Route: 061
  74. FLUTICASONE. [Concomitant]
     Active Substance: FLUTICASONE
     Dosage: UNK (50 MCG/ ACTUATION NASL SPSN)
  75. CEPHALEXIN. [Concomitant]
     Active Substance: CEPHALEXIN
     Dosage: 500 MG, 4X/DAY
     Route: 048
  76. SOLU-MEDROL [Concomitant]
     Active Substance: METHYLPREDNISOLONE SODIUM SUCCINATE
     Dosage: 125 MG, UNK
     Route: 042
     Dates: start: 20150130
  77. DILANTIN [Suspect]
     Active Substance: PHENYTOIN
     Dosage: UNK
     Route: 048
     Dates: start: 20091008, end: 20171013
  78. KEPPRA [Concomitant]
     Active Substance: LEVETIRACETAM
     Dosage: 125 MG, UNK
     Route: 048
  79. DAPSONE. [Concomitant]
     Active Substance: DAPSONE
     Dosage: 2 DF, 3X/DAY
     Route: 048
     Dates: start: 20150313, end: 20160708
  80. DAPSONE. [Concomitant]
     Active Substance: DAPSONE
     Dosage: 2 DF, DAILY
     Route: 048
  81. FLONASE [Concomitant]
     Active Substance: FLUTICASONE PROPIONATE
     Dosage: USE 2 SPRAYS IN EACH NOSTRIL DAILY
     Route: 045
  82. PERIACTIN [Concomitant]
     Active Substance: CYPROHEPTADINE HYDROCHLORIDE
     Dosage: TAKE 1 TABLET 3 TIMES A DAY
     Route: 048
  83. NEURONTIN [Concomitant]
     Active Substance: GABAPENTIN
     Dosage: UNK
     Dates: start: 2013
  84. CLONAZEPAM. [Concomitant]
     Active Substance: CLONAZEPAM
     Dosage: 0.5 MG, UNK
     Route: 048
  85. LANTUS [Concomitant]
     Active Substance: INSULIN GLARGINE
     Indication: BLOOD GLUCOSE INCREASED
     Dosage: UNK
     Dates: start: 2019
  86. GABAPENTIN. [Concomitant]
     Active Substance: GABAPENTIN
     Dosage: 300 MG, UNK
     Route: 048
  87. ASPIRIN. [Concomitant]
     Active Substance: ASPIRIN
     Dosage: 81 MG, UNK
     Route: 048
     Dates: start: 20180223
  88. DILANTIN [Suspect]
     Active Substance: PHENYTOIN
     Indication: GENERALISED TONIC-CLONIC SEIZURE
     Dosage: 100 MG, DAILY
     Route: 048
     Dates: start: 19970428
  89. DILANTIN [Suspect]
     Active Substance: PHENYTOIN
     Dosage: 400 MG, DAILY (PER DAY AT BED TIME)
     Route: 048
     Dates: start: 200501
  90. DILANTIN [Suspect]
     Active Substance: PHENYTOIN
     Dosage: 100 MG, UNK
     Route: 048
     Dates: start: 20090805
  91. DILANTIN [Suspect]
     Active Substance: PHENYTOIN
     Dosage: 500 MG, 1X/DAY (100 MG 5 CAPSULES AT BED TIME)
     Route: 048
     Dates: start: 20130725
  92. DILANTIN [Suspect]
     Active Substance: PHENYTOIN
     Dosage: 500 MG, DAILY
     Route: 048
     Dates: start: 20130529
  93. DILANTIN [Suspect]
     Active Substance: PHENYTOIN
     Dosage: 300 MG, 1X/DAY (100 MG 3 CAPSULES AT BED TIME)
     Route: 048
     Dates: start: 20140507
  94. DILANTIN [Suspect]
     Active Substance: PHENYTOIN
     Dosage: UNK
     Route: 048
     Dates: start: 20110210, end: 20110626
  95. KLONOPIN [Concomitant]
     Active Substance: CLONAZEPAM
     Indication: SEIZURE
     Dosage: 1 DF, 3X/DAY
     Route: 048
  96. LAMICTAL [Concomitant]
     Active Substance: LAMOTRIGINE
     Dosage: UNK (OFF AND ON)
     Dates: start: 2005
  97. LAMICTAL [Concomitant]
     Active Substance: LAMOTRIGINE
     Dosage: UNK (OFF AND ON)
     Dates: start: 2006
  98. LAMICTAL [Concomitant]
     Active Substance: LAMOTRIGINE
     Dosage: UNK (OFF AND ON)
     Dates: start: 2008
  99. LAMICTAL [Concomitant]
     Active Substance: LAMOTRIGINE
     Dosage: 1 DF, UNK
     Route: 048
  100. DIVALPROEX [Concomitant]
     Active Substance: DIVALPROEX SODIUM
     Dosage: 250 MG, UNK
     Route: 048
  101. LEVOTHROID [Concomitant]
     Active Substance: LEVOTHYROXINE SODIUM
     Dosage: 1 DF, 1X/DAY
     Route: 048
     Dates: start: 20150314, end: 20160708
  102. ONFI [Concomitant]
     Active Substance: CLOBAZAM
     Dosage: 1 DF, 2X/DAY
     Route: 048
     Dates: end: 20150603
  103. NEURONTIN [Concomitant]
     Active Substance: GABAPENTIN
     Indication: PAIN
     Dosage: 2 DF, 1X/DAY
  104. RITUXAN [Concomitant]
     Active Substance: RITUXIMAB
     Dosage: UNK
     Route: 042
     Dates: start: 20141230, end: 20150116
  105. TRILEPTAL [Concomitant]
     Active Substance: OXCARBAZEPINE
     Indication: JUVENILE MYOCLONIC EPILEPSY
     Dosage: 150 MG, 2X/DAY
     Route: 048
     Dates: start: 20140210, end: 20140214
  106. VIMPAT [Concomitant]
     Active Substance: LACOSAMIDE
     Dosage: UNK
  107. HYDROXYZINE HCL [Concomitant]
     Active Substance: HYDROXYZINE HYDROCHLORIDE
     Dosage: 25 MG, UNK
     Route: 048
  108. TRIAMCINOLONE ACETONIDE. [Concomitant]
     Active Substance: TRIAMCINOLONE ACETONIDE
     Dosage: 40 MG/ML, UNK
  109. FLUTICASONE. [Concomitant]
     Active Substance: FLUTICASONE
     Dosage: UNK
     Route: 045
  110. DILANTIN [Suspect]
     Active Substance: PHENYTOIN
     Dosage: 100 MG, DAILY
     Route: 048
     Dates: start: 19991121
  111. DILANTIN [Suspect]
     Active Substance: PHENYTOIN
     Dosage: 100 MG, DAILY
     Route: 048
     Dates: start: 20010117
  112. DILANTIN [Suspect]
     Active Substance: PHENYTOIN
     Dosage: 100 MG, UNK
     Route: 048
     Dates: start: 20090612
  113. DILANTIN [Suspect]
     Active Substance: PHENYTOIN
     Dosage: 400 MG, 1X/DAY (100 MG 4 CAPSULES AT BED TIME)
     Route: 048
     Dates: start: 20120619
  114. DILANTIN [Suspect]
     Active Substance: PHENYTOIN
     Dosage: 500 MG, 1X/DAY (100 MG 5 CAPSULES AT BED TIME)
     Route: 048
     Dates: start: 20130303
  115. DILANTIN [Suspect]
     Active Substance: PHENYTOIN
     Dosage: UNK
     Route: 048
     Dates: start: 20110701, end: 20110908
  116. DILANTIN [Suspect]
     Active Substance: PHENYTOIN
     Indication: SEIZURE
     Dosage: UNK
     Route: 042
  117. KLONOPIN [Concomitant]
     Active Substance: CLONAZEPAM
     Indication: MUSCLE SPASMS
     Dosage: 2 DF, 3X/DAY
     Route: 048
     Dates: start: 20150312, end: 20150912
  118. KLONOPIN [Concomitant]
     Active Substance: CLONAZEPAM
     Dosage: 2 DF, 3X/DAY
     Route: 048
     Dates: start: 20180323
  119. KEPPRA [Concomitant]
     Active Substance: LEVETIRACETAM
     Dosage: UNK (OFF AND ON BETWEEN)
     Dates: start: 2002, end: 2014
  120. LEVITRA [Concomitant]
     Active Substance: VARDENAFIL HYDROCHLORIDE
     Dosage: 0.5 DF, 1X/DAY, TAKE 1/2 TAB 1 HR PRIOR TO SEXUAL ACTIVITY DO NOT EXCEED 1 DOSE IN 24 HOURS
     Route: 048
  121. ONFI [Concomitant]
     Active Substance: CLOBAZAM
     Indication: SEIZURE
     Dosage: 0.5 DF, 2X/DAY
     Route: 048
     Dates: start: 20141203
  122. TRILEPTAL [Concomitant]
     Active Substance: OXCARBAZEPINE
     Indication: SEIZURE
     Dosage: UNK
     Dates: start: 2005
  123. TRILEPTAL [Concomitant]
     Active Substance: OXCARBAZEPINE
     Dosage: 150 MG, 2X/DAY
     Route: 048
     Dates: start: 20140217, end: 20140401
  124. METFORMIN [Concomitant]
     Active Substance: METFORMIN HYDROCHLORIDE
     Indication: BLOOD GLUCOSE INCREASED
     Dosage: UNK
     Dates: start: 2018
  125. IRON SUPPLEMENT [Concomitant]
     Active Substance: IRON
     Indication: IRON DEFICIENCY ANAEMIA
     Dosage: UNK
     Dates: start: 2011
  126. DILANTIN [Suspect]
     Active Substance: PHENYTOIN
     Indication: SEIZURE
     Dosage: 600 MG, DAILY
     Dates: start: 1986
  127. DILANTIN [Suspect]
     Active Substance: PHENYTOIN
     Dosage: 100 MG, 4X/DAY (FOUR TIMES A DAY)
     Route: 048
     Dates: start: 20041208
  128. DILANTIN [Suspect]
     Active Substance: PHENYTOIN
     Dosage: 500 MG, DAILY (PER DAY)
     Route: 048
     Dates: start: 200511
  129. DILANTIN [Suspect]
     Active Substance: PHENYTOIN
     Dosage: 100 MG, UNK
     Route: 048
     Dates: start: 20090505
  130. DILANTIN [Suspect]
     Active Substance: PHENYTOIN
     Dosage: 400 MG, 1X/DAY (100 MG 4 CAPSULES AT BED TIME)
     Route: 048
     Dates: start: 20110701
  131. DILANTIN [Suspect]
     Active Substance: PHENYTOIN
     Dosage: 500 MG, DAILY
     Route: 048
     Dates: start: 20091008
  132. KLONOPIN [Concomitant]
     Active Substance: CLONAZEPAM
     Indication: JUVENILE MYOCLONIC EPILEPSY
     Dosage: 0.5 MG, 2X/DAY
  133. DEPAKOTE [Concomitant]
     Active Substance: DIVALPROEX SODIUM
     Dosage: UNK
     Dates: start: 2014
  134. KEPPRA [Concomitant]
     Active Substance: LEVETIRACETAM
     Dosage: 750 MG, 2X/DAY
     Route: 048
  135. CURCUMIN [Concomitant]
     Active Substance: CURCUMIN
     Dosage: UNK
     Dates: start: 2018, end: 2019
  136. DULCOLAX NOS [Concomitant]
     Active Substance: BISACODYL OR DOCUSATE SODIUM
     Dosage: 3 DF,UNK (IN THE MORNING)
     Route: 048
  137. LIPITOR [Concomitant]
     Active Substance: ATORVASTATIN CALCIUM
     Indication: MYOCARDIAL INFARCTION
     Dosage: 1 DF, DAILY
     Route: 048
     Dates: start: 20180126

REACTIONS (19)
  - Stiff person syndrome [Not Recovered/Not Resolved]
  - Fall [Unknown]
  - Pain [Unknown]
  - Skin laceration [Unknown]
  - Neuromyopathy [Unknown]
  - Cerebral ischaemia [Unknown]
  - Diplopia [Unknown]
  - Cerebellar atrophy [Not Recovered/Not Resolved]
  - Cognitive disorder [Not Recovered/Not Resolved]
  - Loss of personal independence in daily activities [Not Recovered/Not Resolved]
  - Dysarthria [Not Recovered/Not Resolved]
  - Encephalitis [Unknown]
  - Therapeutic product effect incomplete [Unknown]
  - Soft tissue swelling [Unknown]
  - Neuropathy peripheral [Not Recovered/Not Resolved]
  - Cerebellar ataxia [Not Recovered/Not Resolved]
  - Sinus disorder [Unknown]
  - Back pain [Unknown]
  - Dizziness [Unknown]

NARRATIVE: CASE EVENT DATE: 2008
